FAERS Safety Report 13698854 (Version 1)
Quarter: 2017Q2

REPORT INFORMATION
  Report Type: Report from Study
  Country: US (occurrence: US)
  Receive Date: 20170628
  Receipt Date: 20170628
  Transmission Date: 20170830
  Serious: Yes (Other)
  Sender: FDA-Public Use
  Company Number: US-ASTELLAS-2017US025076

PATIENT

DRUGS (2)
  1. BEVACIZUMAB [Suspect]
     Active Substance: BEVACIZUMAB
     Indication: HEREDITARY LEIOMYOMATOSIS RENAL CELL CARCINOMA
     Route: 042
  2. ERLOTINIB [Suspect]
     Active Substance: ERLOTINIB
     Indication: HEREDITARY LEIOMYOMATOSIS RENAL CELL CARCINOMA
     Route: 048

REACTIONS (1)
  - Intracranial venous sinus thrombosis [Recovered/Resolved]
